FAERS Safety Report 11497305 (Version 1)
Quarter: 2015Q3

REPORT INFORMATION
  Report Type: Report from Study
  Country: US (occurrence: US)
  Receive Date: 20150911
  Receipt Date: 20150911
  Transmission Date: 20151125
  Serious: Yes (Hospitalization, Other)
  Sender: FDA-Public Use
  Company Number: US-JNJFOC-20150907996

PATIENT
  Age: 60 Year
  Sex: Female

DRUGS (24)
  1. DILAUDID [Concomitant]
     Active Substance: HYDROMORPHONE HYDROCHLORIDE
  2. OMEGA 3 [Concomitant]
     Active Substance: OMEGA-3 FATTY ACIDS
  3. CALTRATE 600 PLUS [Concomitant]
  4. DIPHENHYDRAMINE. [Concomitant]
     Active Substance: DIPHENHYDRAMINE
  5. LEVAQUIN [Concomitant]
     Active Substance: LEVOFLOXACIN
  6. METOPROLOL [Concomitant]
     Active Substance: METOPROLOL
  7. VITAMINS NOS [Concomitant]
     Active Substance: VITAMINS
  8. OXYCODONE [Concomitant]
     Active Substance: OXYCODONE
  9. POTASSIUM CHLORIDE. [Concomitant]
     Active Substance: POTASSIUM CHLORIDE
  10. SPIRONOLACTONE. [Concomitant]
     Active Substance: SPIRONOLACTONE
  11. IMBRUVICA [Suspect]
     Active Substance: IBRUTINIB
     Indication: CHRONIC LYMPHOCYTIC LEUKAEMIA
     Route: 048
     Dates: start: 201508, end: 20150817
  12. FOLIC ACID. [Concomitant]
     Active Substance: FOLIC ACID
  13. LIDOCAINE W/PRILOCAINE [Concomitant]
  14. BISACODYL. [Concomitant]
     Active Substance: BISACODYL
  15. GENERLAC [Concomitant]
     Active Substance: LACTULOSE
  16. FUROSEMIDE. [Concomitant]
     Active Substance: FUROSEMIDE
  17. GABAPENTIN. [Concomitant]
     Active Substance: GABAPENTIN
  18. LIDOCAINE. [Concomitant]
     Active Substance: LIDOCAINE
  19. MORPHINE SULFATE. [Concomitant]
     Active Substance: MORPHINE SULFATE
  20. BUTALBITAL, ACETAMINOPHEN, AND CAFFEINE [Concomitant]
     Active Substance: ACETAMINOPHEN\BUTALBITAL\CAFFEINE
  21. ACYCLOVIR. [Concomitant]
     Active Substance: ACYCLOVIR
  22. ALENDRONATE [Concomitant]
     Active Substance: ALENDRONATE SODIUM
  23. HYDROXYZINE [Concomitant]
     Active Substance: HYDROXYZINE\HYDROXYZINE HYDROCHLORIDE
  24. SERTRALINE [Concomitant]
     Active Substance: SERTRALINE HYDROCHLORIDE

REACTIONS (7)
  - Contusion [Unknown]
  - Vomiting [Recovered/Resolved]
  - Dizziness [Unknown]
  - Loss of consciousness [Unknown]
  - Diarrhoea [Unknown]
  - Post procedural haemorrhage [Unknown]
  - Platelet count decreased [Unknown]

NARRATIVE: CASE EVENT DATE: 201508
